FAERS Safety Report 8539253-7 (Version None)
Quarter: 2012Q3

REPORT INFORMATION
  Report Type: 
  Country: None (occurrence: None)
  Receive Date: 20120726
  Receipt Date: 20120718
  Transmission Date: 20120928
  Serious: Yes (Other)
  Sender: FDA-Public Use
  Company Number: FR-TEVA-350232ISR

PATIENT
  Sex: Female

DRUGS (3)
  1. ACTIQ [Suspect]
     Indication: PAIN
     Dosage: 4800 MICROGRAM;
     Route: 048
     Dates: end: 20120101
  2. ACTIQ [Suspect]
     Dosage: 7200 MICROGRAM;
     Route: 048
     Dates: start: 20120101
  3. DUROGESIC (NON TEVA DRUG) [Concomitant]
     Indication: PAIN
     Route: 062
     Dates: start: 20120501

REACTIONS (3)
  - OFF LABEL USE [None]
  - DRUG DEPENDENCE [None]
  - OVERDOSE [None]
